FAERS Safety Report 6665044-8 (Version None)
Quarter: 2010Q2

REPORT INFORMATION
  Report Type: 
  Country: None (occurrence: None)
  Receive Date: 20100402
  Receipt Date: 20100324
  Transmission Date: 20101027
  Serious: No
  Sender: FDA-Public Use
  Company Number: US-BIOGENIDEC-2010BI010114

PATIENT
  Age: 33 Year
  Sex: Male

DRUGS (1)
  1. AVONEX [Suspect]
     Indication: MULTIPLE SCLEROSIS
     Route: 030
     Dates: start: 20100102, end: 20100308

REACTIONS (4)
  - BALANCE DISORDER [None]
  - FALL [None]
  - INFLUENZA LIKE ILLNESS [None]
  - JOINT DISLOCATION [None]
